FAERS Safety Report 15173275 (Version 31)
Quarter: 2024Q1

REPORT INFORMATION
  Report Type: Spontaneous
  Country: CA (occurrence: CA)
  Receive Date: 20180720
  Receipt Date: 20240320
  Transmission Date: 20240410
  Serious: Yes (Other)
  Sender: FDA-Public Use
  Company Number: CA-FERRINGPH-2018FE03810

PATIENT
  Age: 53 Year
  Sex: Male

DRUGS (112)
  1. METFORMIN [Suspect]
     Active Substance: METFORMIN HYDROCHLORIDE
     Indication: Product used for unknown indication
     Route: 065
  2. BUDESONIDE [Suspect]
     Active Substance: BUDESONIDE
     Indication: Colitis ulcerative
     Dosage: 1 DF, 1 TIME DAILY (PROLONGED-RELEASE TABLET)
     Route: 048
     Dates: start: 20170701
  3. BUDESONIDE [Suspect]
     Active Substance: BUDESONIDE
     Dosage: 8 DOSAGE FORM, Q8WEEKS (PROLONGED-RELEASE TABLET)
     Route: 048
     Dates: start: 200707
  4. BUDESONIDE [Suspect]
     Active Substance: BUDESONIDE
     Route: 048
  5. BUDESONIDE [Suspect]
     Active Substance: BUDESONIDE
     Route: 048
  6. BUDESONIDE [Suspect]
     Active Substance: BUDESONIDE
     Route: 048
  7. BUDESONIDE [Suspect]
     Active Substance: BUDESONIDE
     Route: 048
  8. BUDESONIDE [Suspect]
     Active Substance: BUDESONIDE
     Dosage: TABLET (DELAYED AND EXTENDED RELEASE)
     Route: 048
  9. BUDESONIDE [Suspect]
     Active Substance: BUDESONIDE
     Route: 065
  10. BUDESONIDE [Suspect]
     Active Substance: BUDESONIDE
     Route: 065
  11. BUDESONIDE [Suspect]
     Active Substance: BUDESONIDE
     Route: 048
  12. BUDESONIDE [Suspect]
     Active Substance: BUDESONIDE
     Route: 048
  13. BUDESONIDE [Suspect]
     Active Substance: BUDESONIDE
     Route: 048
  14. BUDESONIDE [Suspect]
     Active Substance: BUDESONIDE
     Route: 065
  15. BUDESONIDE [Suspect]
     Active Substance: BUDESONIDE
     Indication: Colitis ulcerative
     Dosage: 1 DF, 1 TIME DAILY (PROLONGED-RELEASE TABLET)
     Route: 048
     Dates: start: 20170701
  16. BUDESONIDE [Suspect]
     Active Substance: BUDESONIDE
     Dosage: 8 DOSAGE FORM, Q8WEEKS (PROLONGED-RELEASE TABLET)
     Route: 048
     Dates: start: 200707
  17. BUDESONIDE [Suspect]
     Active Substance: BUDESONIDE
     Route: 048
  18. BUDESONIDE [Suspect]
     Active Substance: BUDESONIDE
     Route: 048
  19. BUDESONIDE [Suspect]
     Active Substance: BUDESONIDE
     Route: 048
  20. BUDESONIDE [Suspect]
     Active Substance: BUDESONIDE
     Route: 048
  21. BUDESONIDE [Suspect]
     Active Substance: BUDESONIDE
     Route: 048
  22. BUDESONIDE [Suspect]
     Active Substance: BUDESONIDE
     Route: 048
  23. BUDESONIDE [Suspect]
     Active Substance: BUDESONIDE
     Route: 048
  24. BUDESONIDE [Suspect]
     Active Substance: BUDESONIDE
     Route: 048
  25. BUDESONIDE [Suspect]
     Active Substance: BUDESONIDE
     Route: 048
  26. BUDESONIDE [Suspect]
     Active Substance: BUDESONIDE
     Route: 048
  27. BUDESONIDE [Suspect]
     Active Substance: BUDESONIDE
     Route: 048
  28. BUDESONIDE [Suspect]
     Active Substance: BUDESONIDE
     Route: 048
  29. BUDESONIDE [Suspect]
     Active Substance: BUDESONIDE
     Route: 048
  30. BUDESONIDE [Suspect]
     Active Substance: BUDESONIDE
     Route: 048
  31. BUDESONIDE [Suspect]
     Active Substance: BUDESONIDE
     Route: 065
  32. BUDESONIDE [Suspect]
     Active Substance: BUDESONIDE
     Route: 048
  33. BUDESONIDE [Suspect]
     Active Substance: BUDESONIDE
     Route: 048
  34. BUDESONIDE [Suspect]
     Active Substance: BUDESONIDE
     Route: 065
  35. BUDESONIDE [Suspect]
     Active Substance: BUDESONIDE
     Route: 065
  36. BUDESONIDE [Suspect]
     Active Substance: BUDESONIDE
     Route: 048
  37. BUDESONIDE [Suspect]
     Active Substance: BUDESONIDE
     Route: 048
  38. BUDESONIDE [Suspect]
     Active Substance: BUDESONIDE
     Route: 065
  39. BUDESONIDE [Suspect]
     Active Substance: BUDESONIDE
     Route: 065
  40. MESALAMINE [Suspect]
     Active Substance: MESALAMINE
     Indication: Colitis ulcerative
     Route: 065
  41. MESALAMINE [Suspect]
     Active Substance: MESALAMINE
     Route: 048
  42. MESALAMINE [Suspect]
     Active Substance: MESALAMINE
     Route: 065
  43. MESALAMINE [Suspect]
     Active Substance: MESALAMINE
     Route: 048
  44. MESALAMINE [Suspect]
     Active Substance: MESALAMINE
     Route: 065
  45. MESALAMINE [Suspect]
     Active Substance: MESALAMINE
     Route: 048
  46. MESALAMINE [Suspect]
     Active Substance: MESALAMINE
     Route: 065
  47. MESALAMINE [Suspect]
     Active Substance: MESALAMINE
     Route: 065
  48. MESALAMINE [Suspect]
     Active Substance: MESALAMINE
     Dosage: DURATION: 243 (UNSPECIFIED UNIT)
     Route: 065
  49. MESALAMINE [Suspect]
     Active Substance: MESALAMINE
     Route: 065
  50. MESALAMINE [Suspect]
     Active Substance: MESALAMINE
     Route: 065
  51. MESALAMINE [Suspect]
     Active Substance: MESALAMINE
     Dosage: TABLET (DELAYEDAND EXTENDED RELEASE)
     Route: 065
  52. MESALAMINE [Suspect]
     Active Substance: MESALAMINE
     Route: 065
  53. MESALAMINE [Suspect]
     Active Substance: MESALAMINE
     Route: 048
  54. MESALAMINE [Suspect]
     Active Substance: MESALAMINE
     Route: 065
  55. MESALAMINE [Suspect]
     Active Substance: MESALAMINE
     Route: 065
  56. MESALAMINE [Suspect]
     Active Substance: MESALAMINE
     Route: 065
  57. MESALAMINE [Suspect]
     Active Substance: MESALAMINE
     Route: 065
  58. MESALAMINE [Suspect]
     Active Substance: MESALAMINE
     Route: 065
  59. MESALAMINE [Suspect]
     Active Substance: MESALAMINE
     Route: 048
  60. MESALAMINE [Suspect]
     Active Substance: MESALAMINE
     Route: 048
  61. MESALAMINE [Suspect]
     Active Substance: MESALAMINE
     Dosage: DURATION : 243 (UNSPECIFIED UNITS)
     Route: 065
  62. MESALAMINE [Suspect]
     Active Substance: MESALAMINE
     Route: 065
  63. MESALAMINE [Suspect]
     Active Substance: MESALAMINE
     Route: 065
  64. MESALAMINE [Suspect]
     Active Substance: MESALAMINE
     Dosage: DURATION: 243 (UNSPECIFIED UNITS)
     Route: 065
  65. MESALAMINE [Suspect]
     Active Substance: MESALAMINE
     Route: 065
  66. MESALAMINE [Suspect]
     Active Substance: MESALAMINE
     Dosage: TABLET (DELAYED AND EXTENDED RELEASE)
     Route: 065
  67. MESALAMINE [Suspect]
     Active Substance: MESALAMINE
     Route: 065
  68. MESALAMINE [Suspect]
     Active Substance: MESALAMINE
     Route: 065
  69. MESALAMINE [Suspect]
     Active Substance: MESALAMINE
     Route: 065
  70. MESALAMINE [Suspect]
     Active Substance: MESALAMINE
     Route: 065
  71. MESALAMINE [Suspect]
     Active Substance: MESALAMINE
     Route: 065
  72. MESALAMINE [Suspect]
     Active Substance: MESALAMINE
     Route: 065
  73. MESALAMINE [Suspect]
     Active Substance: MESALAMINE
     Route: 048
  74. MESALAMINE [Suspect]
     Active Substance: MESALAMINE
     Route: 065
  75. MESALAMINE [Suspect]
     Active Substance: MESALAMINE
     Route: 065
  76. MESALAMINE [Suspect]
     Active Substance: MESALAMINE
     Route: 065
  77. MESALAMINE [Suspect]
     Active Substance: MESALAMINE
     Route: 065
  78. MESALAMINE [Suspect]
     Active Substance: MESALAMINE
     Route: 065
  79. MESALAMINE [Suspect]
     Active Substance: MESALAMINE
     Route: 048
  80. MESALAMINE [Suspect]
     Active Substance: MESALAMINE
     Route: 048
  81. MESALAMINE [Suspect]
     Active Substance: MESALAMINE
     Route: 065
  82. MESALAMINE [Suspect]
     Active Substance: MESALAMINE
     Route: 048
  83. MESALAMINE [Suspect]
     Active Substance: MESALAMINE
     Route: 048
  84. MESALAMINE [Suspect]
     Active Substance: MESALAMINE
     Route: 048
  85. MESALAMINE [Suspect]
     Active Substance: MESALAMINE
     Route: 048
  86. MESALAMINE [Suspect]
     Active Substance: MESALAMINE
     Route: 065
  87. MESALAMINE [Suspect]
     Active Substance: MESALAMINE
     Route: 065
  88. MESALAMINE [Suspect]
     Active Substance: MESALAMINE
     Route: 048
  89. MESALAMINE [Suspect]
     Active Substance: MESALAMINE
     Route: 065
  90. MESALAMINE [Suspect]
     Active Substance: MESALAMINE
     Route: 065
  91. HYDROCORTISONE [Suspect]
     Active Substance: HYDROCORTISONE
     Indication: Colitis ulcerative
     Route: 042
  92. HYDROCORTISONE [Suspect]
     Active Substance: HYDROCORTISONE
     Indication: Crohn^s disease
  93. HYDROCORTISONE [Suspect]
     Active Substance: HYDROCORTISONE
     Indication: Colitis ulcerative
     Dosage: UNK, UNK, QD
     Route: 065
     Dates: start: 201807
  94. HYDROCORTISONE [Suspect]
     Active Substance: HYDROCORTISONE
     Indication: Crohn^s disease
     Dosage: 1 DOSAGE FORM, 1X/DAY QD
     Route: 048
  95. HYDROCORTISONE [Suspect]
     Active Substance: HYDROCORTISONE
     Dosage: 8 DOSAGE FORM, Q8 WEEK
     Route: 065
     Dates: start: 201707
  96. HYDROCORTISONE ACETATE [Suspect]
     Active Substance: HYDROCORTISONE ACETATE
     Indication: Crohn^s disease
     Route: 065
  97. HYDROCORTISONE ACETATE [Suspect]
     Active Substance: HYDROCORTISONE ACETATE
     Indication: Colitis ulcerative
     Route: 048
  98. HYDROCORTISONE ACETATE [Suspect]
     Active Substance: HYDROCORTISONE ACETATE
     Route: 048
  99. HYDROCORTISONE ACETATE [Suspect]
     Active Substance: HYDROCORTISONE ACETATE
     Route: 048
  100. HYDROCORTISONE ACETATE [Suspect]
     Active Substance: HYDROCORTISONE ACETATE
     Route: 065
  101. HYDROCORTISONE ACETATE [Suspect]
     Active Substance: HYDROCORTISONE ACETATE
     Route: 048
  102. HYDROCORTISONE ACETATE [Suspect]
     Active Substance: HYDROCORTISONE ACETATE
     Route: 065
  103. HYDROCORTISONE ACETATE [Suspect]
     Active Substance: HYDROCORTISONE ACETATE
     Route: 065
  104. HYDROCORTISONE ACETATE [Suspect]
     Active Substance: HYDROCORTISONE ACETATE
     Route: 048
  105. HYDROCORTISONE ACETATE [Suspect]
     Active Substance: HYDROCORTISONE ACETATE
     Route: 065
  106. HYDROCORTISONE ACETATE [Suspect]
     Active Substance: HYDROCORTISONE ACETATE
     Route: 048
  107. HYDROCORTISONE ACETATE [Suspect]
     Active Substance: HYDROCORTISONE ACETATE
     Indication: Crohn^s disease
     Route: 065
  108. HYDROCORTISONE ACETATE [Suspect]
     Active Substance: HYDROCORTISONE ACETATE
     Indication: Colitis ulcerative
     Route: 065
  109. HYDROCORTISONE ACETATE [Suspect]
     Active Substance: HYDROCORTISONE ACETATE
     Route: 065
  110. BUDESONIDE [Suspect]
     Active Substance: BUDESONIDE
     Indication: Colitis ulcerative
     Route: 065
  111. CORTISONE [Suspect]
     Active Substance: CORTISONE
     Indication: Crohn^s disease
     Route: 065
  112. CORTISONE [Suspect]
     Active Substance: CORTISONE
     Indication: Colitis ulcerative

REACTIONS (53)
  - Bronchiectasis [Not Recovered/Not Resolved]
  - Weight decreased [Not Recovered/Not Resolved]
  - Impaired quality of life [Not Recovered/Not Resolved]
  - Deep vein thrombosis [Not Recovered/Not Resolved]
  - Colitis ulcerative [Not Recovered/Not Resolved]
  - Loss of personal independence in daily activities [Not Recovered/Not Resolved]
  - Frequent bowel movements [Not Recovered/Not Resolved]
  - Condition aggravated [Not Recovered/Not Resolved]
  - Colitis ulcerative [Not Recovered/Not Resolved]
  - Impaired work ability [Not Recovered/Not Resolved]
  - Steroid dependence [Not Recovered/Not Resolved]
  - Stress [Not Recovered/Not Resolved]
  - Haematochezia [Not Recovered/Not Resolved]
  - Rectal haemorrhage [Not Recovered/Not Resolved]
  - Abdominal discomfort [Not Recovered/Not Resolved]
  - Arthritis [Not Recovered/Not Resolved]
  - Burns second degree [Not Recovered/Not Resolved]
  - COVID-19 [Recovered/Resolved]
  - Cardiac murmur [Not Recovered/Not Resolved]
  - Catarrh [Not Recovered/Not Resolved]
  - Cerebrovascular accident [Not Recovered/Not Resolved]
  - Confusional state [Not Recovered/Not Resolved]
  - Depression [Recovered/Resolved]
  - Dysgeusia [Not Recovered/Not Resolved]
  - Eczema [Recovered/Resolved]
  - Fatigue [Recovered/Resolved]
  - Gingival pain [Not Recovered/Not Resolved]
  - Headache [Recovered/Resolved]
  - Hypopnoea [Not Recovered/Not Resolved]
  - Migraine [Not Recovered/Not Resolved]
  - Nightmare [Recovered/Resolved]
  - Pain [Recovered/Resolved]
  - Pain in extremity [Not Recovered/Not Resolved]
  - Palpitations [Not Recovered/Not Resolved]
  - Parosmia [Not Recovered/Not Resolved]
  - Pulmonary embolism [Not Recovered/Not Resolved]
  - Pyrexia [Not Recovered/Not Resolved]
  - Rash [Not Recovered/Not Resolved]
  - Rhinitis [Not Recovered/Not Resolved]
  - Somnolence [Not Recovered/Not Resolved]
  - Swollen tongue [Recovered/Resolved]
  - Systemic lupus erythematosus [Not Recovered/Not Resolved]
  - Tinnitus [Not Recovered/Not Resolved]
  - Tubulointerstitial nephritis [Not Recovered/Not Resolved]
  - Vertigo [Not Recovered/Not Resolved]
  - Adverse drug reaction [Not Recovered/Not Resolved]
  - Accidental overdose [Not Recovered/Not Resolved]
  - Medication error [Not Recovered/Not Resolved]
  - Intentional product use issue [Not Recovered/Not Resolved]
  - Off label use [Not Recovered/Not Resolved]
  - Inappropriate schedule of product administration [Not Recovered/Not Resolved]
  - Product use in unapproved indication [Not Recovered/Not Resolved]
  - Drug ineffective [Not Recovered/Not Resolved]

NARRATIVE: CASE EVENT DATE: 20080101
